FAERS Safety Report 17360333 (Version 3)
Quarter: 2023Q4

REPORT INFORMATION
  Report Type: Spontaneous
  Country: US (occurrence: US)
  Receive Date: 20200203
  Receipt Date: 20231012
  Transmission Date: 20240110
  Serious: Yes (Hospitalization, Other)
  Sender: FDA-Public Use
  Company Number: US-GILEAD-2020-0448768

PATIENT
  Age: 57 Year
  Sex: Male
  Weight: 63.492 kg

DRUGS (17)
  1. TRUVADA [Suspect]
     Active Substance: EMTRICITABINE\TENOFOVIR DISOPROXIL FUMARATE
     Indication: HIV infection
     Dosage: UNK
     Route: 048
     Dates: start: 2015
  2. TRUVADA [Suspect]
     Active Substance: EMTRICITABINE\TENOFOVIR DISOPROXIL FUMARATE
     Dosage: UNK
     Route: 048
     Dates: start: 201601, end: 201905
  3. DESCOVY [Concomitant]
     Active Substance: EMTRICITABINE\TENOFOVIR ALAFENAMIDE FUMARATE
  4. EPIVIR [Concomitant]
     Active Substance: LAMIVUDINE
  5. NORVIR [Concomitant]
     Active Substance: RITONAVIR
  6. PREZISTA [Concomitant]
     Active Substance: DARUNAVIR ETHANOLATE
  7. RETROVIR [Concomitant]
     Active Substance: ZIDOVUDINE
  8. SUSTIVA [Concomitant]
     Active Substance: EFAVIRENZ
  9. SYMTUZA [Concomitant]
     Active Substance: COBICISTAT\DARUNAVIR\EMTRICITABINE\TENOFOVIR ALAFENAMIDE
  10. ATOVAQUONE [Concomitant]
     Active Substance: ATOVAQUONE
  11. DAPSONE [Concomitant]
     Active Substance: DAPSONE
  12. ESCITALOPRAM OXALATE [Concomitant]
     Active Substance: ESCITALOPRAM OXALATE
  13. FLUCONAZOLE [Concomitant]
     Active Substance: FLUCONAZOLE
  14. FOLIC ACID [Concomitant]
     Active Substance: FOLIC ACID
  15. MEGESTROL [Concomitant]
     Active Substance: MEGESTROL
  16. OXYCODONE [Concomitant]
     Active Substance: OXYCODONE
  17. SULFAMETHOXAZOLE AND TRIMETHOPRIM [Concomitant]
     Active Substance: SULFAMETHOXAZOLE\TRIMETHOPRIM

REACTIONS (8)
  - Renal failure [Not Recovered/Not Resolved]
  - Economic problem [Not Recovered/Not Resolved]
  - Anhedonia [Not Recovered/Not Resolved]
  - Emotional distress [Not Recovered/Not Resolved]
  - Anxiety [Not Recovered/Not Resolved]
  - Pain [Not Recovered/Not Resolved]
  - Depression [Not Recovered/Not Resolved]
  - Acute kidney injury [Not Recovered/Not Resolved]

NARRATIVE: CASE EVENT DATE: 20190201
